FAERS Safety Report 9725648 (Version 1)
Quarter: 2013Q4

REPORT INFORMATION
  Report Type: Spontaneous
  Country: ZA (occurrence: ZA)
  Receive Date: 20131203
  Receipt Date: 20131203
  Transmission Date: 20140711
  Serious: Yes (Death)
  Sender: FDA-Public Use
  Company Number: ZA-ELI_LILLY_AND_COMPANY-ZA201311008348

PATIENT
  Sex: Female

DRUGS (1)
  1. HUMALOG 25% LISPRO, 75% NPL [Suspect]
     Indication: PRODUCT USED FOR UNKNOWN INDICATION
     Dosage: 1 DF, BID

REACTIONS (2)
  - Gastrointestinal haemorrhage [Fatal]
  - Chronic obstructive pulmonary disease [Unknown]
